FAERS Safety Report 10173721 (Version 1)
Quarter: 2014Q2

REPORT INFORMATION
  Report Type: Spontaneous
  Country: GB (occurrence: GB)
  Receive Date: 20140515
  Receipt Date: 20140515
  Transmission Date: 20141212
  Serious: Yes (Other)
  Sender: FDA-Public Use
  Company Number: GB-DRREDDYS-GER/UKI/14/0040278

PATIENT
  Age: 34 Year
  Sex: Male
  Weight: 69.85 kg

DRUGS (2)
  1. FEXOFENADINE [Suspect]
     Indication: SEASONAL ALLERGY
     Route: 048
     Dates: start: 20140429, end: 20140430
  2. SALBUTAMOL [Concomitant]
     Indication: PRODUCT USED FOR UNKNOWN INDICATION

REACTIONS (2)
  - Abdominal pain lower [Not Recovered/Not Resolved]
  - Dizziness [Recovered/Resolved]
